FAERS Safety Report 22181380 (Version 1)
Quarter: 2023Q2

REPORT INFORMATION
  Report Type: Spontaneous
  Country: US (occurrence: None)
  Receive Date: 20230406
  Receipt Date: 20230406
  Transmission Date: 20230721
  Serious: Yes (Hospitalization)
  Sender: FDA-Public Use
  Company Number: None

PATIENT
  Age: 72 Year
  Sex: Female
  Weight: 129 kg

DRUGS (15)
  1. OFEV [Suspect]
     Active Substance: NINTEDANIB
     Dosage: FREQUENCY : TWICE A DAY;?
     Route: 048
     Dates: start: 20230123, end: 20230404
  2. amlodipine 10 mg daily [Concomitant]
  3. ASPIRIN [Concomitant]
     Active Substance: ASPIRIN
  4. Trulicity 1.5 mg every week [Concomitant]
  5. calcium + Vit D 1 BID [Concomitant]
  6. empagliflozin 25 mg daily [Concomitant]
  7. furosemide 40 mg BID [Concomitant]
  8. gabapentin 300 mg TID [Concomitant]
  9. Hydralazine 100 mg BID [Concomitant]
  10. Insulin lispro 32 units TID AC [Concomitant]
  11. isosorbide dinatrate 20 mg [Concomitant]
  12. LOSARTAN [Concomitant]
     Active Substance: LOSARTAN
  13. Metoprolol succinate 50 mg daily [Concomitant]
  14. LIVALO [Concomitant]
     Active Substance: PITAVASTATIN CALCIUM
  15. VITAMIN B COMPLEX [Concomitant]
     Active Substance: CYANOCOBALAMIN\DEXPANTHENOL\NIACINAMIDE\PYRIDOXINE HYDROCHLORIDE\RIBOFLAVIN 5^-PHOSPHATE SODIUM\THIA

REACTIONS (2)
  - Pulmonary embolism [None]
  - Deep vein thrombosis [None]

NARRATIVE: CASE EVENT DATE: 20230404
